FAERS Safety Report 19464245 (Version 2)
Quarter: 2021Q2

REPORT INFORMATION
  Report Type: Spontaneous
  Country: US (occurrence: US)
  Receive Date: 20210626
  Receipt Date: 20210626
  Transmission Date: 20210717
  Serious: No
  Sender: FDA-Public Use
  Company Number: US-009507513-2106USA005953

PATIENT
  Age: 30 Year
  Sex: Male

DRUGS (3)
  1. MEROPENEM. [Concomitant]
     Active Substance: MEROPENEM
  2. CUBICIN [Suspect]
     Active Substance: DAPTOMYCIN
     Indication: BACTERIAL SEPSIS
     Dosage: UNK
  3. VORICONAZOLE. [Concomitant]
     Active Substance: VORICONAZOLE

REACTIONS (1)
  - Off label use [Unknown]
